FAERS Safety Report 13455893 (Version 1)
Quarter: 2017Q2

REPORT INFORMATION
  Report Type: Spontaneous
  Country: US (occurrence: US)
  Receive Date: 20170418
  Receipt Date: 20170418
  Transmission Date: 20170830
  Serious: No
  Sender: FDA-Public Use
  Company Number: US-BAYER-2017-074380

PATIENT
  Age: 82 Year
  Sex: Male
  Weight: 93 kg

DRUGS (4)
  1. HERBAL DIURETIC [Concomitant]
  2. DULCOLAX (BISACODYL) [Concomitant]
     Active Substance: BISACODYL
     Dosage: UNK
  3. MIRALAX [Suspect]
     Active Substance: POLYETHYLENE GLYCOL 3350
     Indication: GASTROINTESTINAL DISORDER
     Dosage: 17 GRAMS ONCE DAILY DOSE
     Route: 048
     Dates: start: 2016, end: 20170418
  4. FLOMAX [Concomitant]
     Active Substance: TAMSULOSIN HYDROCHLORIDE

REACTIONS (1)
  - Drug ineffective [Unknown]
